FAERS Safety Report 10218695 (Version 1)
Quarter: 2014Q2

REPORT INFORMATION
  Report Type: Spontaneous
  Country: US (occurrence: None)
  Receive Date: 20140604
  Receipt Date: 20140604
  Transmission Date: 20141212
  Serious: Yes (Disabling)
  Sender: FDA-Public Use
  Company Number: None

PATIENT
  Sex: Female
  Weight: 54.43 kg

DRUGS (1)
  1. LEVOTHYROXINE 112 MCG TAB [Suspect]
     Indication: HYPOTHYROIDISM
     Dosage: 1 TAB DAILY PO
     Route: 048
     Dates: start: 2013

REACTIONS (3)
  - Hyperthyroidism [None]
  - Hypothyroidism [None]
  - Drug ineffective [None]
